FAERS Safety Report 25776954 (Version 1)
Quarter: 2025Q3

REPORT INFORMATION
  Report Type: Spontaneous
  Country: EU (occurrence: EU)
  Receive Date: 20250909
  Receipt Date: 20250909
  Transmission Date: 20251021
  Serious: Yes (Other)
  Sender: SAMSUNG BIOEPIS
  Company Number: None

PATIENT
  Age: 58 Year
  Sex: Female
  Weight: 74 kg

DRUGS (2)
  1. IMRALDI [Suspect]
     Active Substance: ADALIMUMAB
     Indication: Rheumatoid arthritis
     Dosage: 40MG/0.8ML, EVERY 4 WEEKS NOW, INITIALLY EVERY 2 WEEKS,
     Dates: start: 20240101
  2. IMRALDI [Suspect]
     Active Substance: ADALIMUMAB
     Dosage: 40MG/0.8ML, EVERY 4 WEEKS NOW, INITIALLY EVERY 2 WEEKS; IMRALDI 40 INJVLST 50MG/ML PEN 0.8ML;
     Dates: end: 20250827

REACTIONS (6)
  - Pneumonia [Not Recovered/Not Resolved]
  - Lung disorder [Not Recovered/Not Resolved]
  - Cough [Not Recovered/Not Resolved]
  - Asthma [Not Recovered/Not Resolved]
  - Bronchitis chronic [Not Recovered/Not Resolved]
  - Off label use [Unknown]
